FAERS Safety Report 12253254 (Version 1)
Quarter: 2016Q2

REPORT INFORMATION
  Report Type: Spontaneous
  Country: US (occurrence: None)
  Receive Date: 20160408
  Receipt Date: 20160408
  Transmission Date: 20160815
  Serious: Yes (Death)
  Sender: FDA-Public Use
  Company Number: None

PATIENT
  Age: 39 Year
  Sex: Male
  Weight: 103.5 kg

DRUGS (12)
  1. SODIUM BICARBONATE. [Concomitant]
     Active Substance: SODIUM BICARBONATE
  2. LEVOFLOXACIN. [Concomitant]
     Active Substance: LEVOFLOXACIN
  3. LEVOPHED [Concomitant]
     Active Substance: NOREPINEPHRINE BITARTRATE
  4. PERIDEX [Concomitant]
     Active Substance: CHLORHEXIDINE GLUCONATE
  5. DEFINITY [Suspect]
     Active Substance: PERFLUTREN
     Indication: CARDIAC VENTRICULAR DISORDER
     Route: 040
     Dates: start: 20160218, end: 20160218
  6. LIPITOR [Concomitant]
     Active Substance: ATORVASTATIN CALCIUM
  7. PLAVIX [Concomitant]
     Active Substance: CLOPIDOGREL BISULFATE
  8. LOVENOX [Concomitant]
     Active Substance: ENOXAPARIN SODIUM
  9. PEPCID [Concomitant]
     Active Substance: FAMOTIDINE
  10. INSULIN [Concomitant]
     Active Substance: INSULIN NOS
  11. ZOSYN [Concomitant]
     Active Substance: PIPERACILLIN SODIUM\TAZOBACTAM SODIUM
  12. VANCOMYCIN [Concomitant]
     Active Substance: VANCOMYCIN

REACTIONS (2)
  - Contrast media reaction [None]
  - Cardio-respiratory arrest [None]

NARRATIVE: CASE EVENT DATE: 20160218
